FAERS Safety Report 6938225-3 (Version None)
Quarter: 2010Q3

REPORT INFORMATION
  Report Type: 
  Country: None (occurrence: None)
  Receive Date: 20100824
  Receipt Date: 20100811
  Transmission Date: 20110219
  Serious: Yes (Hospitalization)
  Sender: FDA-Public Use
  Company Number: US-ELI_LILLY_AND_COMPANY-US201008003821

PATIENT
  Sex: Male

DRUGS (5)
  1. HUMULIN N [Suspect]
     Indication: DIABETES MELLITUS
     Dosage: UNK, EACH MORNING
     Route: 065
  2. HUMULIN N [Suspect]
     Dosage: UNK, OTHER (AT NIGHT)
     Route: 065
  3. HUMULIN R [Suspect]
     Indication: DIABETES MELLITUS
     Dosage: UNK, UNKNOWN (ON AND OFF)
     Route: 065
  4. HUMULIN R [Suspect]
     Dosage: UNK (SLIDING DOSE), UNKNOWN
     Route: 065
  5. METFORMIN HCL [Concomitant]

REACTIONS (9)
  - BLOOD CREATINE ABNORMAL [None]
  - BLOOD GLUCOSE ABNORMAL [None]
  - BLOOD UREA ABNORMAL [None]
  - CARDIAC DISORDER [None]
  - CARDIAC FAILURE CONGESTIVE [None]
  - CORONARY ARTERY BYPASS [None]
  - DIABETES MELLITUS INADEQUATE CONTROL [None]
  - PNEUMONIA [None]
  - RENAL DISORDER [None]
